FAERS Safety Report 7218041-8 (Version None)
Quarter: 2011Q1

REPORT INFORMATION
  Report Type: 
  Country: None (occurrence: None)
  Receive Date: 20110110
  Receipt Date: 20110105
  Transmission Date: 20110831
  Serious: Yes (Other)
  Sender: FDA-Public Use
  Company Number: BR-ABBOTT-10P-020-0682182-00

PATIENT
  Sex: Female
  Weight: 67 kg

DRUGS (3)
  1. ARAVA [Concomitant]
     Indication: PAIN
     Route: 048
     Dates: start: 20050101
  2. HUMIRA [Suspect]
     Indication: RHEUMATOID ARTHRITIS
     Route: 058
     Dates: start: 20080201
  3. PREDNISONE [Concomitant]
     Indication: PAIN
     Route: 048
     Dates: start: 20020101

REACTIONS (4)
  - ARTHRITIS [None]
  - ARTHRALGIA [None]
  - BLOOD GLUCOSE DECREASED [None]
  - NODULE [None]
